FAERS Safety Report 20165242 (Version 5)
Quarter: 2022Q1

REPORT INFORMATION
  Report Type: Spontaneous
  Country: US (occurrence: US)
  Receive Date: 20211209
  Receipt Date: 20220303
  Transmission Date: 20220423
  Serious: No
  Sender: FDA-Public Use
  Company Number: US-BIOVITRUM-2021US11807

PATIENT
  Sex: Male

DRUGS (10)
  1. SYNAGIS [Suspect]
     Active Substance: PALIVIZUMAB
     Indication: Product used for unknown indication
     Dosage: UNKNOWN
     Route: 065
  2. SYNAGIS [Suspect]
     Active Substance: PALIVIZUMAB
     Dosage: UNKNOWN
     Route: 065
     Dates: start: 20210827
  3. SYNAGIS [Suspect]
     Active Substance: PALIVIZUMAB
     Dosage: UNKNOWN
     Route: 065
     Dates: start: 20211112
  4. FERROUS SULFATE [Concomitant]
     Active Substance: FERROUS SULFATE
  5. VITAMIN D DROPS [Concomitant]
  6. HYDROCORTISONE [Concomitant]
     Active Substance: HYDROCORTISONE
  7. SIMETHICONE (DIMETHICONE) [Concomitant]
     Active Substance: DIMETHICONE
  8. ALBUTEROL [Concomitant]
     Active Substance: ALBUTEROL
  9. SILDENAFIL [Concomitant]
     Active Substance: SILDENAFIL
  10. PREVACID [Concomitant]
     Active Substance: LANSOPRAZOLE

REACTIONS (2)
  - Diarrhoea [Recovered/Resolved]
  - COVID-19 [Recovered/Resolved]
